FAERS Safety Report 4952924-4 (Version None)
Quarter: 2006Q1

REPORT INFORMATION
  Report Type: 
  Country: None (occurrence: None)
  Receive Date: 20060324
  Receipt Date: 20060303
  Transmission Date: 20060701
  Serious: Yes (Disabling)
  Sender: FDA-Public Use
  Company Number: PHBS2006CH03382

PATIENT
  Sex: Female

DRUGS (8)
  1. AREDIA [Suspect]
     Indication: METASTASES TO BONE
     Dosage: 60 MG, QMO
     Route: 042
     Dates: start: 20020901, end: 20050930
  2. ZOCOR [Concomitant]
     Dosage: 40 MG/D
     Route: 048
     Dates: start: 20000101
  3. ANTINEOPLASTIC AGENTS [Concomitant]
     Dates: start: 20020101
  4. ANTINEOPLASTIC AGENTS [Concomitant]
     Dates: start: 20040101
  5. ZOMETA [Suspect]
     Indication: METASTASES TO BONE
     Dosage: 4 MG, QMO
     Route: 042
     Dates: start: 20051030, end: 20060201
  6. DIAMICRON MR [Concomitant]
     Dosage: 30 MG/D
     Route: 048
     Dates: start: 20000101
  7. GLUCOPHAGE [Concomitant]
     Dosage: 850 MG/D
     Route: 048
     Dates: start: 20000101
  8. ENATEC [Concomitant]
     Dosage: 20 MG/D
     Route: 048
     Dates: start: 19990101

REACTIONS (2)
  - OSTEONECROSIS [None]
  - TOOTH EXTRACTION [None]
